FAERS Safety Report 17423311 (Version 1)
Quarter: 2020Q1

REPORT INFORMATION
  Report Type: Spontaneous
  Country: US (occurrence: US)
  Receive Date: 20200217
  Receipt Date: 20200217
  Transmission Date: 20200409
  Serious: No
  Sender: FDA-Public Use
  Company Number: US-BIOGEN-2020BI00834933

PATIENT
  Sex: Female

DRUGS (1)
  1. TYSABRI [Suspect]
     Active Substance: NATALIZUMAB
     Indication: MULTIPLE SCLEROSIS
     Route: 042
     Dates: start: 20100630

REACTIONS (8)
  - Pharyngitis [Unknown]
  - Pyrexia [Unknown]
  - Pneumonia [Unknown]
  - Cough [Unknown]
  - Multiple sclerosis relapse [Unknown]
  - Viral infection [Unknown]
  - Rhinorrhoea [Unknown]
  - Influenza [Unknown]
